FAERS Safety Report 24866311 (Version 5)
Quarter: 2025Q2

REPORT INFORMATION
  Report Type: Spontaneous
  Country: US (occurrence: US)
  Receive Date: 20250121
  Receipt Date: 20250519
  Transmission Date: 20250717
  Serious: No
  Sender: NOVARTIS
  Company Number: US-002147023-NVSC2025US009342

PATIENT
  Sex: Female

DRUGS (1)
  1. DIOVAN [Suspect]
     Active Substance: VALSARTAN
     Indication: Product used for unknown indication
     Dosage: UNK UNK, QD, (80)
     Route: 048

REACTIONS (5)
  - Product odour abnormal [Unknown]
  - Abdominal discomfort [Unknown]
  - Pain in extremity [Unknown]
  - Dyspepsia [Unknown]
  - Malaise [Unknown]
